FAERS Safety Report 9285964 (Version 2)
Quarter: 2013Q2

REPORT INFORMATION
  Report Type: Spontaneous
  Country: ES (occurrence: ES)
  Receive Date: 20130513
  Receipt Date: 20130611
  Transmission Date: 20140414
  Serious: Yes (Hospitalization, Other)
  Sender: FDA-Public Use
  Company Number: ES-B.I. PHARMACEUTICALS,INC./RIDGEFIELD-2013-ES-00210ES

PATIENT
  Age: 74 Year
  Sex: Male

DRUGS (9)
  1. TRAJENTA [Suspect]
     Route: 065
     Dates: start: 20120417
  2. OMEPRAZOLE [Suspect]
     Route: 065
     Dates: start: 20120417
  3. CELEBREX [Suspect]
     Route: 065
     Dates: start: 20120517
  4. PARAPRES PLUS [Suspect]
     Dosage: STRENGTH: 16 MG/12.5 MG
     Route: 065
     Dates: start: 20120127
  5. RONAME [Suspect]
     Route: 048
     Dates: start: 20120626
  6. VYTORIN [Suspect]
     Dosage: STRENGTH: 10MG/20MG
     Route: 065
     Dates: start: 20120525
  7. PLANTAGO OVATA LEAF [Concomitant]
  8. ADIRO [Concomitant]
  9. NOLOTIL [Concomitant]
     Dosage: AS REQUIRED

REACTIONS (3)
  - Abdominal pain [Recovered/Resolved]
  - Hepatitis cholestatic [Not Recovered/Not Resolved]
  - Jaundice [Unknown]
